FAERS Safety Report 8003063-X (Version None)
Quarter: 2011Q4

REPORT INFORMATION
  Report Type: 
  Country: None (occurrence: None)
  Receive Date: 20111219
  Receipt Date: 20111201
  Transmission Date: 20120403
  Serious: Yes (Hospitalization, Other)
  Sender: FDA-Public Use
  Company Number: THQ2011A03302

PATIENT
  Age: 74 Year
  Sex: Male

DRUGS (5)
  1. THIOCTACID (THIOCTIC ACID) [Concomitant]
  2. PRAVASTATIN [Concomitant]
  3. METFORMIN HCL [Concomitant]
  4. ACTOS [Suspect]
     Indication: TYPE 2 DIABETES MELLITUS
     Dosage: 15 MG (15 MG, 1 IN 1 D)
     Route: 048
     Dates: start: 20051031, end: 20110620
  5. AMARYL [Concomitant]

REACTIONS (2)
  - BLOOD GLUCOSE INCREASED [None]
  - BLADDER TRANSITIONAL CELL CARCINOMA [None]
